FAERS Safety Report 16495603 (Version 1)
Quarter: 2019Q2

REPORT INFORMATION
  Report Type: Spontaneous
  Country: US (occurrence: US)
  Receive Date: 20190628
  Receipt Date: 20190628
  Transmission Date: 20190711
  Serious: No
  Sender: FDA-Public Use
  Company Number: US-PFIZER INC-2019275672

PATIENT
  Age: 76 Year
  Sex: Female
  Weight: 48.53 kg

DRUGS (1)
  1. SERTRALINE HCL [Suspect]
     Active Substance: SERTRALINE HYDROCHLORIDE
     Dosage: 25 MG, DAILY(DOSE-1 TABLET DAILY)

REACTIONS (1)
  - Drug ineffective [Unknown]
